APPROVED DRUG PRODUCT: OMNICEF
Active Ingredient: CEFDINIR
Strength: 250MG/5ML **Federal Register determination that product was not discontinued or withdrawn for safety or effectiveness reasons**
Dosage Form/Route: FOR SUSPENSION;ORAL
Application: N050749 | Product #002
Applicant: ABBVIE INC
Approved: Jul 29, 2004 | RLD: Yes | RS: No | Type: DISCN